APPROVED DRUG PRODUCT: E-BASE
Active Ingredient: ERYTHROMYCIN
Strength: 500MG
Dosage Form/Route: TABLET, DELAYED RELEASE;ORAL
Application: A062999 | Product #001
Applicant: BARR LABORATORIES INC
Approved: Nov 25, 1988 | RLD: No | RS: No | Type: DISCN